FAERS Safety Report 9227161 (Version 3)
Quarter: 2014Q2

REPORT INFORMATION
  Report Type: Report from Study
  Country: DE (occurrence: DE)
  Receive Date: 20130412
  Receipt Date: 20140623
  Transmission Date: 20141212
  Serious: Yes (Hospitalization)
  Sender: FDA-Public Use
  Company Number: PHHY2013DE035413

PATIENT
  Age: 47 Year
  Sex: Male
  Weight: 93 kg

DRUGS (2)
  1. ILARIS [Suspect]
     Indication: CRYOPYRIN ASSOCIATED PERIODIC SYNDROME
     Dosage: 300 MG, PER 8 WEEKS
     Route: 058
     Dates: start: 20101019, end: 20130511
  2. NOVAMINOSULFON [Concomitant]
     Indication: ANALGESIC THERAPY
     Dosage: 1 DF, PRN

REACTIONS (1)
  - Diverticulitis [Recovered/Resolved]
